FAERS Safety Report 16688281 (Version 1)
Quarter: 2019Q3

REPORT INFORMATION
  Report Type: Spontaneous
  Country: US (occurrence: US)
  Receive Date: 20190809
  Receipt Date: 20190809
  Transmission Date: 20191004
  Serious: Yes (Other)
  Sender: FDA-Public Use
  Company Number: US-BEH-2019105189

PATIENT
  Sex: Female

DRUGS (15)
  1. HIZENTRA [Suspect]
     Active Substance: HUMAN IMMUNOGLOBULIN G
     Indication: IMMUNODEFICIENCY COMMON VARIABLE
     Dosage: 7 GRAM, QW, 2 SITES
     Route: 058
     Dates: start: 201803
  2. VITAMIN B12 AMINO [Concomitant]
  3. VENTOLIN HFA [Concomitant]
     Active Substance: ALBUTEROL SULFATE
  4. ASCORBIC ACID. [Concomitant]
     Active Substance: ASCORBIC ACID
  5. VITAMIN E AL [Concomitant]
     Active Substance: TOCOPHEROL
  6. DILTIAZEM HCL [Concomitant]
     Active Substance: DILTIAZEM HYDROCHLORIDE
  7. NAPROSYN E [Concomitant]
     Active Substance: NAPROXEN
  8. PREDNISONE. [Concomitant]
     Active Substance: PREDNISONE
  9. HIZENTRA [Suspect]
     Active Substance: HUMAN IMMUNOGLOBULIN G
     Dosage: UNK
     Route: 058
  10. SIMVASTATIN. [Concomitant]
     Active Substance: SIMVASTATIN
  11. ALBUTEROL SULFATE. [Concomitant]
     Active Substance: ALBUTEROL SULFATE
  12. VITAMIN B1 [Concomitant]
     Active Substance: THIAMINE HYDROCHLORIDE
  13. VITAMIN D NOS [Concomitant]
     Active Substance: VITAMIN D NOS
  14. FLUTICASONE FUROATE;VILANTEROL [Concomitant]
     Active Substance: FLUTICASONE FUROATE\VILANTEROL TRIFENATATE
  15. IPRATROPIUM [Concomitant]
     Active Substance: IPRATROPIUM

REACTIONS (10)
  - Pulmonary congestion [Unknown]
  - Hyperhidrosis [Recovered/Resolved]
  - Sputum discoloured [Unknown]
  - Infusion site mass [Recovered/Resolved]
  - Hot flush [Recovered/Resolved]
  - Lung infection [Unknown]
  - Cough [Unknown]
  - Infusion site haemorrhage [Recovered/Resolved]
  - Infusion site erythema [Recovered/Resolved]
  - Tremor [Recovered/Resolved]
